FAERS Safety Report 5405147-9 (Version None)
Quarter: 2007Q3

REPORT INFORMATION
  Report Type: 
  Country: None (occurrence: None)
  Receive Date: 20070803
  Receipt Date: 20070723
  Transmission Date: 20080115
  Serious: Yes (Other)
  Sender: FDA-Public Use
  Company Number: CZ-GENENTECH-242314

PATIENT
  Sex: Female

DRUGS (4)
  1. AVASTIN [Suspect]
     Indication: COLORECTAL CANCER METASTATIC
     Dosage: 7.5 MG/KG, Q3W
     Route: 065
     Dates: start: 20070507
  2. CAPECITABINE [Suspect]
     Indication: COLORECTAL CANCER METASTATIC
     Dates: start: 20070507
  3. OXALIPLATIN [Suspect]
     Indication: COLORECTAL CANCER METASTATIC
     Dates: start: 20070507
  4. ANTIHYPERTENSIVE DRUG NOS [Concomitant]
     Indication: HYPERTENSION

REACTIONS (2)
  - CHEST PAIN [None]
  - MUSCULOSKELETAL CHEST PAIN [None]
